FAERS Safety Report 11245908 (Version 1)
Quarter: 2015Q3

REPORT INFORMATION
  Report Type: Spontaneous
  Country: US (occurrence: US)
  Receive Date: 20150708
  Receipt Date: 20150708
  Transmission Date: 20151125
  Serious: Yes (Hospitalization, Other)
  Sender: FDA-Public Use
  Company Number: US-PAR PHARMACEUTICAL, INC-2015SCPR014113

PATIENT

DRUGS (3)
  1. LEVETIRACETAM. [Suspect]
     Active Substance: LEVETIRACETAM
     Indication: PRODUCT USED FOR UNKNOWN INDICATION
     Dosage: UNK UNK, UNKNOWN
     Route: 048
  2. CYCLOBENZAPRINE [Suspect]
     Active Substance: CYCLOBENZAPRINE
     Indication: PRODUCT USED FOR UNKNOWN INDICATION
     Dosage: UPTO 120 MG, UNKNOWN
     Route: 048
  3. LACOSAMIDE [Suspect]
     Active Substance: LACOSAMIDE
     Indication: PRODUCT USED FOR UNKNOWN INDICATION
     Dosage: UPTO 4.5 G, UNKNOWN
     Route: 048

REACTIONS (12)
  - Generalised tonic-clonic seizure [Recovered/Resolved]
  - QRS axis abnormal [Recovered/Resolved]
  - Respiratory depression [Recovered/Resolved]
  - Depressed level of consciousness [Recovered/Resolved]
  - Intentional overdose [Unknown]
  - Drug interaction [Unknown]
  - Sinus tachycardia [Recovered/Resolved]
  - Bradycardia [Recovered/Resolved]
  - Intentional self-injury [Unknown]
  - Unresponsive to stimuli [Unknown]
  - Ventricular fibrillation [Recovered/Resolved]
  - Electrocardiogram QRS complex prolonged [Recovered/Resolved]
